FAERS Safety Report 5951803-3 (Version None)
Quarter: 2008Q4

REPORT INFORMATION
  Report Type: 
  Country: None (occurrence: None)
  Receive Date: 20081113
  Receipt Date: 20081107
  Transmission Date: 20090506
  Serious: Yes (Death)
  Sender: FDA-Public Use
  Company Number: A0755411A

PATIENT
  Age: 54 Year
  Sex: Female

DRUGS (8)
  1. LAMICTAL [Suspect]
     Indication: BIPOLAR DISORDER
     Dosage: 200MG PER DAY
     Route: 048
     Dates: start: 20060101
  2. ZOFRAN [Suspect]
     Indication: PROPHYLAXIS OF NAUSEA AND VOMITING
     Dosage: 8MG FOUR TIMES PER DAY
     Route: 048
  3. COGENTIN [Concomitant]
  4. REGLAN [Concomitant]
  5. LEVSIN [Concomitant]
  6. PHENERGAN HCL [Concomitant]
  7. DARVOCET [Concomitant]
  8. KLONOPIN [Concomitant]

REACTIONS (1)
  - COMPLETED SUICIDE [None]
